FAERS Safety Report 5381742-0 (Version None)
Quarter: 2007Q3

REPORT INFORMATION
  Report Type: 
  Country: None (occurrence: None)
  Receive Date: 20070709
  Receipt Date: 20070705
  Transmission Date: 20080115
  Serious: Yes (Death, Hospitalization)
  Sender: FDA-Public Use
  Company Number: PHBS2007JP09931

PATIENT
  Age: 65 Year
  Sex: Male

DRUGS (3)
  1. NATEGLINIDE [Suspect]
     Dosage: UNK, UNK
     Route: 048
     Dates: start: 20050826
  2. METFORMINE [Concomitant]
  3. CHEMOTHERAPEUTICS NOS [Concomitant]
     Dates: start: 20060118

REACTIONS (28)
  - ALANINE AMINOTRANSFERASE INCREASED [None]
  - ASCITES [None]
  - ASPARTATE AMINOTRANSFERASE INCREASED [None]
  - BILE DUCT STENT INSERTION [None]
  - BILE DUCT T-TUBE INSERTION [None]
  - BILIARY DILATATION [None]
  - BLOOD ALKALINE PHOSPHATASE INCREASED [None]
  - BLOOD BILIRUBIN INCREASED [None]
  - BLOOD CHLORIDE DECREASED [None]
  - BLOOD CREATININE INCREASED [None]
  - BLOOD LACTATE DEHYDROGENASE INCREASED [None]
  - BLOOD SODIUM DECREASED [None]
  - BLOOD UREA INCREASED [None]
  - C-REACTIVE PROTEIN INCREASED [None]
  - COMPUTERISED TOMOGRAM ABNORMAL [None]
  - DEPRESSED LEVEL OF CONSCIOUSNESS [None]
  - FAECES DISCOLOURED [None]
  - GAMMA-GLUTAMYLTRANSFERASE INCREASED [None]
  - JAUNDICE CHOLESTATIC [None]
  - LYMPHOCYTE PERCENTAGE DECREASED [None]
  - METASTASES TO LIVER [None]
  - NEUTROPHIL PERCENTAGE INCREASED [None]
  - PANCREATIC CARCINOMA [None]
  - PERICARDIAL EFFUSION [None]
  - PLEURAL EFFUSION [None]
  - SKIN DISCOLOURATION [None]
  - VOMITING [None]
  - WHITE BLOOD CELL COUNT INCREASED [None]
